FAERS Safety Report 5314843-3 (Version None)
Quarter: 2007Q2

REPORT INFORMATION
  Report Type: 
  Country: None (occurrence: None)
  Receive Date: 20070426
  Receipt Date: 20070417
  Transmission Date: 20071010
  Serious: Yes (Hospitalization, Other)
  Sender: FDA-Public Use
  Company Number: CERZ-11623

PATIENT
  Age: 69 Year
  Sex: Female
  Weight: 88 kg

DRUGS (3)
  1. CEREZYME [Suspect]
     Indication: GAUCHER'S DISEASE
     Dosage: 49 U/KG Q3WKS, IV
     Route: 042
     Dates: start: 19970418
  2. COLCHICINE [Suspect]
     Indication: GOUT
     Dates: start: 20070301, end: 20070401
  3. ALLOPURINOL [Suspect]
     Indication: GOUT
     Dates: start: 20070301, end: 20070401

REACTIONS (2)
  - GOUT [None]
  - STEVENS-JOHNSON SYNDROME [None]
